FAERS Safety Report 10972151 (Version 1)
Quarter: 2015Q1

REPORT INFORMATION
  Report Type: Spontaneous
  Country: DE (occurrence: DE)
  Receive Date: 20150331
  Receipt Date: 20150331
  Transmission Date: 20150721
  Serious: Yes (Other)
  Sender: FDA-Public Use
  Company Number: ALCN2015DE001990

PATIENT
  Sex: Female

DRUGS (4)
  1. ANASTROZOL [Concomitant]
     Active Substance: ANASTROZOLE
     Indication: BREAST CANCER
     Dosage: UNK
  2. VITALUX PLUS [Suspect]
     Active Substance: VITAMINS
     Dosage: UNK
     Route: 048
  3. LUCENTIS [Concomitant]
     Active Substance: RANIBIZUMAB
     Dosage: UNK
  4. RAMIPRIL. [Concomitant]
     Active Substance: RAMIPRIL
     Indication: HYPERTENSION
     Dosage: UNK

REACTIONS (2)
  - Disease progression [Unknown]
  - Age-related macular degeneration [Unknown]
